FAERS Safety Report 7917207-9 (Version None)
Quarter: 2011Q4

REPORT INFORMATION
  Report Type: 
  Country: None (occurrence: None)
  Receive Date: 20111116
  Receipt Date: 20111104
  Transmission Date: 20120403
  Serious: Yes (Death)
  Sender: FDA-Public Use
  Company Number: CH-NOVOPROD-338912

PATIENT

DRUGS (1)
  1. NOVOSEVEN RT [Suspect]
     Indication: AORTIC DISSECTION

REACTIONS (1)
  - INTRACARDIAC THROMBUS [None]
